FAERS Safety Report 17909214 (Version 2)
Quarter: 2020Q3

REPORT INFORMATION
  Report Type: Spontaneous
  Country: FR (occurrence: FR)
  Receive Date: 20200617
  Receipt Date: 20200922
  Transmission Date: 20201103
  Serious: Yes (Other)
  Sender: FDA-Public Use
  Company Number: FR-INDIVIOR US-INDV-125264-2020

PATIENT
  Age: 38 Year
  Sex: Male

DRUGS (6)
  1. ALCOOL [Suspect]
     Active Substance: ALCOHOL
     Indication: ALCOHOL USE
     Dosage: UNK
     Route: 048
     Dates: start: 20200426, end: 20200426
  2. METHADONE AP HP [Suspect]
     Active Substance: METHADONE HYDROCHLORIDE
     Indication: DRUG ABUSE
     Dosage: 350 MILLIGRAM
     Route: 048
     Dates: start: 20200426, end: 20200426
  3. METHADONE AP HP [Suspect]
     Active Substance: METHADONE HYDROCHLORIDE
     Dosage: MORE THAN 70 MG/HOUR
     Route: 048
     Dates: end: 20200619
  4. SUBUTEX [Suspect]
     Active Substance: BUPRENORPHINE HYDROCHLORIDE
     Indication: DRUG ABUSE
     Dosage: (2X8MG)
     Route: 048
     Dates: start: 20200426, end: 20200426
  5. TRAMADOL. [Suspect]
     Active Substance: TRAMADOL
     Indication: DRUG ABUSE
     Dosage: 3 PLAQUETTES
     Route: 048
     Dates: start: 20200426, end: 20200426
  6. SUBUTEX [Suspect]
     Active Substance: BUPRENORPHINE HYDROCHLORIDE
     Dosage: 4 MILLIGRAM, UNKNOWN
     Route: 065
     Dates: start: 20200621, end: 20200621

REACTIONS (5)
  - Feeling drunk [Recovered/Resolved]
  - Drug withdrawal syndrome [Recovered/Resolved]
  - Substance abuse [Not Recovered/Not Resolved]
  - Agitation [Recovered/Resolved]
  - Drug abuse [Not Recovered/Not Resolved]

NARRATIVE: CASE EVENT DATE: 20200426
